FAERS Safety Report 20539814 (Version 1)
Quarter: 2022Q1

REPORT INFORMATION
  Report Type: Spontaneous
  Country: CN (occurrence: CN)
  Receive Date: 20220302
  Receipt Date: 20220302
  Transmission Date: 20220423
  Serious: Yes (Hospitalization)
  Sender: FDA-Public Use
  Company Number: CN-BAYER-2021A243419

PATIENT
  Age: 79 Year
  Sex: Female

DRUGS (1)
  1. XARELTO [Suspect]
     Active Substance: RIVAROXABAN
     Indication: Pulmonary embolism
     Dosage: 10 MG, BID
     Route: 048
     Dates: start: 20190820, end: 20190824

REACTIONS (5)
  - Haematemesis [Recovering/Resolving]
  - Epigastric discomfort [Recovering/Resolving]
  - Nausea [Recovering/Resolving]
  - Prescribed underdose [Unknown]
  - Underdose [Unknown]

NARRATIVE: CASE EVENT DATE: 20190820
